FAERS Safety Report 5632376-1 (Version None)
Quarter: 2008Q1

REPORT INFORMATION
  Report Type: 
  Country: None (occurrence: None)
  Receive Date: 20080220
  Receipt Date: 20080208
  Transmission Date: 20080703
  Serious: Yes (Hospitalization, Other)
  Sender: FDA-Public Use
  Company Number: US-ELI_LILLY_AND_COMPANY-US200802001996

PATIENT
  Sex: Female
  Weight: 75.737 kg

DRUGS (7)
  1. CYMBALTA [Suspect]
     Indication: DEPRESSION
     Dosage: 60 MG, UNK
     Dates: start: 20070901
  2. CYMBALTA [Suspect]
     Dosage: 30 MG, UNK
  3. CLARITIN [Concomitant]
     Dosage: 10 MG, UNK
  4. ACYCLOVIR [Concomitant]
     Indication: ORAL HERPES
     Dosage: 400 MG, DAILY (1/D)
  5. WARFARIN SODIUM [Concomitant]
     Indication: CARDIAC DISORDER
     Dosage: 10 MG, UNK
  6. KLONOPIN [Concomitant]
     Dosage: 0.5 MG, AS NEEDED
  7. RESTORIL [Concomitant]
     Indication: SLEEP DISORDER
     Dosage: 1 D/F, AS NEEDED

REACTIONS (8)
  - ASTHENIA [None]
  - ATRIAL FIBRILLATION [None]
  - BLOOD CHOLESTEROL INCREASED [None]
  - BLOOD TRIGLYCERIDES INCREASED [None]
  - CARDIAC FAILURE CONGESTIVE [None]
  - DYSPNOEA [None]
  - HEPATIC ENZYME INCREASED [None]
  - WEIGHT INCREASED [None]
